FAERS Safety Report 6128576-7 (Version None)
Quarter: 2009Q1

REPORT INFORMATION
  Report Type: 
  Country: None (occurrence: None)
  Receive Date: 20090323
  Receipt Date: 20090316
  Transmission Date: 20090719
  Serious: Yes (Life-Threatening, Other)
  Sender: FDA-Public Use
  Company Number: JP-ROXANE LABORATORIES, INC.-2009-RO-00244RO

PATIENT
  Age: 60 Year
  Sex: Female
  Weight: 54 kg

DRUGS (25)
  1. PROPRANOLOL [Suspect]
     Indication: PROCEDURAL HYPOTENSION
     Route: 042
  2. MIDAZOLAM HCL [Suspect]
     Indication: PREMEDICATION
     Route: 030
  3. LIDOCAINE [Suspect]
     Indication: VENTRICULAR TACHYCARDIA
     Route: 042
  4. LIDOCAINE [Suspect]
     Indication: CARDIOVASCULAR DISORDER
     Route: 042
  5. LIDOCAINE [Suspect]
     Indication: ARTERIOSPASM CORONARY
  6. MEPERIDINE HCL [Suspect]
     Indication: PREMEDICATION
     Route: 030
  7. FAMOTIDINE [Suspect]
     Indication: PREMEDICATION
     Route: 048
  8. ATROPINE SULFATE [Suspect]
     Indication: PREMEDICATION
     Route: 030
  9. PROPOFOL [Suspect]
     Indication: INDUCTION AND MAINTENANCE OF ANAESTHESIA
     Route: 042
  10. PROPOFOL [Suspect]
  11. FENTANYL-25 [Suspect]
     Indication: INDUCTION OF ANAESTHESIA
     Route: 042
  12. VECURONIUM BROMIDE [Suspect]
     Indication: INDUCTION OF ANAESTHESIA
     Route: 042
  13. NITROUS OXIDE [Suspect]
     Indication: MAINTENANCE OF ANAESTHESIA
     Route: 055
  14. PROSTAGLANDIN E [Suspect]
     Indication: PROCEDURAL HYPOTENSION
  15. ISOSORBIDE DINITRATE PATCH [Suspect]
     Indication: PROPHYLAXIS
     Route: 062
  16. EPINEPHRINE [Suspect]
     Indication: VENTRICULAR TACHYCARDIA
     Route: 042
  17. EPINEPHRINE [Suspect]
  18. DOPAMINE HCL [Suspect]
     Indication: CARDIOVASCULAR DISORDER
  19. DOPAMINE HCL [Suspect]
     Indication: ARTERIOSPASM CORONARY
  20. NICARDIPINE HYDROCHLORIDE [Suspect]
     Indication: CARDIOVASCULAR DISORDER
  21. NICARDIPINE HYDROCHLORIDE [Suspect]
     Indication: ARTERIOSPASM CORONARY
  22. DILTIAZEM [Suspect]
     Indication: CARDIOVASCULAR DISORDER
  23. DILTIAZEM [Suspect]
     Indication: ARTERIOSPASM CORONARY
  24. EPHEDRINE [Suspect]
     Indication: HYPOTENSION
     Route: 042
  25. PHENYLEPHRINE [Suspect]
     Indication: HYPOTENSION
     Route: 042

REACTIONS (7)
  - ARTERIOSPASM CORONARY [None]
  - CARDIAC ARREST [None]
  - DRUG INEFFECTIVE [None]
  - ELECTROCARDIOGRAM ST SEGMENT ELEVATION [None]
  - HYPERTENSION [None]
  - HYPOTENSION [None]
  - VENTRICULAR TACHYCARDIA [None]
